FAERS Safety Report 7989112-3 (Version None)
Quarter: 2011Q4

REPORT INFORMATION
  Report Type: 
  Country: None (occurrence: None)
  Receive Date: 20111219
  Receipt Date: 20111207
  Transmission Date: 20120403
  Serious: Yes (Other)
  Sender: FDA-Public Use
  Company Number: GB-US-EMD SERONO, INC.-7100763

PATIENT
  Sex: Female

DRUGS (2)
  1. CETROTIDE [Suspect]
     Indication: PRODUCT USED FOR UNKNOWN INDICATION
  2. CHORIONIC GONADOTROPIN [Concomitant]

REACTIONS (1)
  - ABORTION SPONTANEOUS [None]
